FAERS Safety Report 17982474 (Version 1)
Quarter: 2020Q3

REPORT INFORMATION
  Report Type: Spontaneous
  Country: US (occurrence: US)
  Receive Date: 20200702
  Receipt Date: 20200702
  Transmission Date: 20201103
  Serious: Yes (Other)
  Sender: FDA-Public Use
  Company Number: None

PATIENT
  Age: 59 Year
  Sex: Female
  Weight: 107 kg

DRUGS (1)
  1. PROLIA [Suspect]
     Active Substance: DENOSUMAB
     Indication: OSTEOPOROSIS
     Dosage: ?          OTHER FREQUENCY:Q 6 MONTHS;?
     Route: 058
     Dates: start: 20200417

REACTIONS (8)
  - Facial pain [None]
  - Pain in extremity [None]
  - Fatigue [None]
  - Skin disorder [None]
  - Diarrhoea [None]
  - Back pain [None]
  - Arthralgia [None]
  - Rash [None]

NARRATIVE: CASE EVENT DATE: 20200626
